FAERS Safety Report 15514815 (Version 2)
Quarter: 2018Q4

REPORT INFORMATION
  Report Type: Spontaneous
  Country: US (occurrence: US)
  Receive Date: 20181016
  Receipt Date: 20181017
  Transmission Date: 20190205
  Serious: No
  Sender: FDA-Public Use
  Company Number: US-BIOGEN-2018BI00643814

PATIENT
  Age: 62 Year
  Sex: Female

DRUGS (1)
  1. TYSABRI [Suspect]
     Active Substance: NATALIZUMAB
     Indication: MULTIPLE SCLEROSIS
     Dosage: INFUSED FOR OVER ONE MONTH
     Route: 042
     Dates: start: 20180919

REACTIONS (3)
  - Bite [Not Recovered/Not Resolved]
  - Joint stiffness [Unknown]
  - Pruritus [Unknown]

NARRATIVE: CASE EVENT DATE: 201809
